FAERS Safety Report 8176256-9 (Version None)
Quarter: 2012Q1

REPORT INFORMATION
  Report Type: 
  Country: None (occurrence: None)
  Receive Date: 20120301
  Receipt Date: 20120222
  Transmission Date: 20120608
  Serious: No
  Sender: FDA-Public Use
  Company Number: US-B.I. PHARMACEUTICALS,INC./RIDGEFIELD-2012-BP-03459BP

PATIENT
  Sex: Female

DRUGS (4)
  1. LASIX [Concomitant]
     Indication: BLADDER PROLAPSE
     Dosage: 20 MG
     Route: 048
  2. PRADAXA [Suspect]
     Indication: ATRIAL FIBRILLATION
     Dosage: 300 MG
     Route: 048
     Dates: start: 20110401
  3. VERAPAMIL [Concomitant]
     Indication: ATRIAL FIBRILLATION
     Dosage: 120 MG
     Route: 048
     Dates: start: 20111201
  4. TOPROL-XL [Concomitant]
     Indication: HYPERTENSION
     Dosage: 75 MG
     Route: 048

REACTIONS (2)
  - HAEMATOCRIT DECREASED [None]
  - DYSPNOEA [None]
